FAERS Safety Report 14668351 (Version 1)
Quarter: 2018Q1

REPORT INFORMATION
  Report Type: Spontaneous
  Country: US (occurrence: US)
  Receive Date: 20180321
  Receipt Date: 20180321
  Transmission Date: 20180509
  Serious: Yes (Disabling)
  Sender: FDA-Public Use
  Company Number: None

PATIENT
  Age: 68 Year
  Sex: Female
  Weight: 54.9 kg

DRUGS (5)
  1. CALCIUM TABLET (FOOD-BASED) [Concomitant]
  2. TUMERIC W/TART CHERRY + BLACK PEPPER [Concomitant]
  3. CIPRO [Suspect]
     Active Substance: CIPROFLOXACIN HYDROCHLORIDE
     Indication: INFECTION
     Dates: start: 20160326, end: 20160404
  4. FOSAMAX [Concomitant]
     Active Substance: ALENDRONATE SODIUM
  5. MELOXICAM LOW DOSE [Concomitant]

REACTIONS (3)
  - Peripheral swelling [None]
  - Rotator cuff syndrome [None]
  - Shoulder operation [None]

NARRATIVE: CASE EVENT DATE: 20160526
